FAERS Safety Report 10050588 (Version 1)
Quarter: 2014Q2

REPORT INFORMATION
  Report Type: Spontaneous
  Country: US (occurrence: US)
  Receive Date: 20140401
  Receipt Date: 20140401
  Transmission Date: 20141212
  Serious: No
  Sender: FDA-Public Use
  Company Number: US-ASTRAZENECA-2013SE52892

PATIENT
  Age: 62 Year
  Sex: Female
  Weight: 62.6 kg

DRUGS (9)
  1. NEXIUM [Suspect]
     Indication: GASTROOESOPHAGEAL REFLUX DISEASE
     Route: 048
     Dates: start: 2008, end: 20121001
  2. PRILOSEC [Suspect]
     Route: 048
     Dates: start: 2012
  3. PRILOSEC [Suspect]
     Dosage: GENERIC
     Route: 048
  4. CELEBREX [Concomitant]
     Indication: ARTHRITIS
     Dosage: UNKNOWN UNK
     Route: 048
     Dates: start: 2005
  5. MULTIVITAMIN [Concomitant]
     Indication: SUPPLEMENTATION THERAPY
     Dosage: 1 TABLET DAILY
     Route: 048
     Dates: start: 2003
  6. EFFEXOR XR [Concomitant]
     Indication: DEPRESSION
     Dosage: UNKNOWN DAILY
     Route: 048
     Dates: start: 2005
  7. VITAMIN D [Concomitant]
     Indication: SUPPLEMENTATION THERAPY
     Dosage: UNKNOWN DAILY
     Route: 048
     Dates: start: 2012
  8. CALCIUM [Concomitant]
     Indication: SUPPLEMENTATION THERAPY
     Dosage: UNKNOWN DAILY
     Route: 048
     Dates: start: 2008
  9. IRON [Concomitant]
     Indication: SUPPLEMENTATION THERAPY
     Route: 048

REACTIONS (5)
  - Gastrooesophageal reflux disease [Not Recovered/Not Resolved]
  - Dyspepsia [Unknown]
  - Ulcer [Unknown]
  - Intentional product misuse [Unknown]
  - Drug ineffective [Unknown]
